FAERS Safety Report 8231372-8 (Version None)
Quarter: 2012Q1

REPORT INFORMATION
  Report Type: 
  Country: None (occurrence: None)
  Receive Date: 20120323
  Receipt Date: 20120315
  Transmission Date: 20120608
  Serious: Yes (Hospitalization)
  Sender: FDA-Public Use
  Company Number: JP-SANOFI-AVENTIS-2012SA014229

PATIENT
  Age: 63 Year
  Sex: Female

DRUGS (4)
  1. LENDORMIN [Concomitant]
  2. MAGNESIUM OXIDE [Concomitant]
  3. SPELEAR [Concomitant]
  4. TAXOTERE [Suspect]
     Indication: NON-SMALL CELL LUNG CANCER RECURRENT
     Route: 042
     Dates: start: 20120117, end: 20120207

REACTIONS (2)
  - CARDIAC FAILURE [None]
  - CARDIOMEGALY [None]
